FAERS Safety Report 7235619-6 (Version None)
Quarter: 2011Q1

REPORT INFORMATION
  Report Type: 
  Country: None (occurrence: None)
  Receive Date: 20110120
  Receipt Date: 20110111
  Transmission Date: 20110831
  Serious: Yes (Hospitalization)
  Sender: FDA-Public Use
  Company Number: US-ASTRAZENECA-2011SE01881

PATIENT
  Age: 27 Year
  Sex: Male

DRUGS (6)
  1. QUETIAPINE [Suspect]
     Dosage: CRUSHED QUETIAPINE WITH ONE OUNCE OF MARIJUANA
     Route: 055
  2. ALPRAZOLAM [Suspect]
  3. MARIJUANA [Suspect]
  4. QUETIAPINE [Suspect]
     Dosage: APPROXIMATELY 2-3 PILLS 100 MG/DAY, IN ADDTION TO QUETIAPINE 100 MG BID
     Route: 048
  5. CRACK COCAINE [Suspect]
  6. QUETIAPINE [Suspect]
     Indication: AFFECTIVE DISORDER
     Route: 048

REACTIONS (3)
  - INTENTIONAL DRUG MISUSE [None]
  - SUBSTANCE ABUSE [None]
  - WRONG TECHNIQUE IN DRUG USAGE PROCESS [None]
